FAERS Safety Report 9410538 (Version 2)
Quarter: 2013Q3

REPORT INFORMATION
  Report Type: Spontaneous
  Country: US (occurrence: US)
  Receive Date: 20130719
  Receipt Date: 20130729
  Transmission Date: 20140515
  Serious: No
  Sender: FDA-Public Use
  Company Number: US-009507513-1307USA003310

PATIENT
  Sex: Female

DRUGS (3)
  1. CLARITIN LIQUIGELS [Suspect]
     Indication: RASH
     Dosage: UNK, UNKNOWN
     Route: 048
  2. CLARITIN LIQUIGELS [Suspect]
     Indication: PRURITUS
  3. CLARITIN LIQUIGELS [Suspect]
     Indication: MEDICAL OBSERVATION

REACTIONS (2)
  - Eye swelling [Not Recovered/Not Resolved]
  - Off label use [Unknown]
